FAERS Safety Report 8321980-8 (Version None)
Quarter: 2012Q2

REPORT INFORMATION
  Report Type: 
  Country: None (occurrence: None)
  Receive Date: 20120430
  Receipt Date: 20120426
  Transmission Date: 20120825
  Serious: Yes (Death)
  Sender: FDA-Public Use
  Company Number: US-ROCHE-1058097

PATIENT
  Sex: Female
  Weight: 50.122 kg

DRUGS (23)
  1. ALBUTEROL [Concomitant]
  2. SALMETEROL XINAFOATE INHALER [Concomitant]
  3. XOPENEX [Concomitant]
  4. VITAMIN C [Concomitant]
  5. WELLBUTRIN [Concomitant]
     Route: 048
  6. XOPENEX [Concomitant]
  7. CALCIUM CARBONATE [Concomitant]
     Route: 048
  8. VITAMIN B COMPLEX CAP [Concomitant]
     Route: 048
  9. VITAMIN D [Concomitant]
     Route: 048
  10. MEGESTROL ACETATE [Concomitant]
     Route: 048
  11. LYRICA [Concomitant]
     Route: 048
  12. ALENDRONATE SODIUM [Concomitant]
     Route: 048
  13. OXYCONTIN [Concomitant]
     Route: 048
  14. NEUPOGEN [Concomitant]
  15. PREDNISONE [Concomitant]
  16. FISH OIL [Concomitant]
     Route: 048
  17. POTASSIUM CHLORIDE [Concomitant]
     Route: 048
  18. VITAMIN E [Concomitant]
     Route: 048
  19. MORPHINE [Concomitant]
  20. AVASTIN [Suspect]
     Indication: PRODUCT USED FOR UNKNOWN INDICATION
  21. GLUCOSAMINE/CHONDROITIN [Concomitant]
     Route: 048
  22. TOPOTECAN [Concomitant]
     Dates: start: 20111129
  23. MOXIFLOXACIN [Concomitant]

REACTIONS (1)
  - DEATH [None]
